FAERS Safety Report 9631801 (Version 1)
Quarter: 2013Q4

REPORT INFORMATION
  Report Type: Spontaneous
  Country: US (occurrence: US)
  Receive Date: 20131018
  Receipt Date: 20131018
  Transmission Date: 20140711
  Serious: Yes (Hospitalization, Other)
  Sender: FDA-Public Use
  Company Number: US-PFIZER INC-2013295310

PATIENT
  Age: 59 Year
  Sex: Female

DRUGS (6)
  1. GABAPENTIN [Suspect]
     Dosage: UNK
  2. ADVAIR [Suspect]
     Indication: CHRONIC OBSTRUCTIVE PULMONARY DISEASE
     Dosage: UNK
  3. VENTOLIN [Suspect]
     Indication: CHRONIC OBSTRUCTIVE PULMONARY DISEASE
     Dosage: UNK
  4. SUNSCREEN [Suspect]
     Dosage: UNK
  5. ALBUTEROL [Suspect]
     Indication: CHRONIC OBSTRUCTIVE PULMONARY DISEASE
     Dosage: UNK
  6. INSULIN [Concomitant]
     Dosage: UNK

REACTIONS (12)
  - Convulsion [Unknown]
  - Haemorrhage [Unknown]
  - Fall [Unknown]
  - Asthma [Unknown]
  - Respiratory disorder [Unknown]
  - Basal cell carcinoma [Unknown]
  - Lung neoplasm malignant [Unknown]
  - Type 2 diabetes mellitus [Unknown]
  - Von Willebrand^s disease [Unknown]
  - Angiopathy [Unknown]
  - Exposure to mould [Unknown]
  - General physical health deterioration [Unknown]
